FAERS Safety Report 21191917 (Version 1)
Quarter: 2022Q3

REPORT INFORMATION
  Report Type: Spontaneous
  Country: US (occurrence: US)
  Receive Date: 20220809
  Receipt Date: 20220809
  Transmission Date: 20221027
  Serious: Yes (Other)
  Sender: FDA-Public Use
  Company Number: US-NOVARTISPH-NVSC2022US178737

PATIENT
  Age: 71 Year
  Sex: Female

DRUGS (2)
  1. NILOTINIB [Suspect]
     Active Substance: NILOTINIB
     Indication: Chronic myeloid leukaemia recurrent
     Dosage: UNK
     Route: 065
     Dates: start: 201405
  2. DASATINIB [Suspect]
     Active Substance: DASATINIB
     Indication: Chronic myeloid leukaemia recurrent
     Dosage: UNK
     Route: 065
     Dates: start: 201405

REACTIONS (2)
  - Gastrointestinal disorder [Unknown]
  - Skin disorder [Unknown]
